FAERS Safety Report 7456135-2 (Version None)
Quarter: 2011Q1

REPORT INFORMATION
  Report Type: 
  Country: None (occurrence: None)
  Receive Date: 20110302
  Receipt Date: 20110104
  Transmission Date: 20110831
  Serious: No
  Sender: FDA-Public Use
  Company Number: 024887

PATIENT
  Sex: Female
  Weight: 61.7 kg

DRUGS (22)
  1. HYDROXYZINE [Concomitant]
  2. DEXLANSOPRAZOLE [Concomitant]
  3. VITAMIN D [Concomitant]
  4. CIMZIA [Suspect]
     Indication: CROHN'S DISEASE
     Dosage: 400 MG 1X/4 WEEKS, ROOT: SUBCUTANEOUS ABD SUBCUTANEOUS
     Route: 058
     Dates: start: 20100910, end: 20101231
  5. MAGNESIUM OXIDE [Concomitant]
  6. ABILIFY [Concomitant]
  7. PROAIR HFA [Concomitant]
  8. POTASSIUM CITRATE [Concomitant]
  9. PRAMIPEXOLE DIHYDROCHLORIDE [Concomitant]
  10. VITAMIN B-12 [Concomitant]
  11. AVELOX [Concomitant]
  12. GEMFIBROZIL [Concomitant]
  13. ULTRAM [Concomitant]
  14. LYRICA [Concomitant]
  15. HYZAAR [Concomitant]
  16. ALLOPURINOL [Concomitant]
  17. SINGULAIR [Concomitant]
  18. ZINC [Concomitant]
  19. FOLIC ACID [Concomitant]
  20. CYMBALTA [Concomitant]
  21. MOBIC [Concomitant]
  22. LOVAZA [Concomitant]

REACTIONS (8)
  - ABDOMINAL PAIN [None]
  - UNEVALUABLE EVENT [None]
  - NASOPHARYNGITIS [None]
  - PYREXIA [None]
  - DIARRHOEA [None]
  - CONSTIPATION [None]
  - ARTHRALGIA [None]
  - SWELLING [None]
